FAERS Safety Report 9639499 (Version 1)
Quarter: 2013Q4

REPORT INFORMATION
  Report Type: Spontaneous
  Country: IE (occurrence: IE)
  Receive Date: 20131023
  Receipt Date: 20131023
  Transmission Date: 20140711
  Serious: Yes (Other)
  Sender: FDA-Public Use
  Company Number: IE-AMGEN-IRLSP2013073426

PATIENT
  Sex: Male

DRUGS (2)
  1. VECTIBIX [Suspect]
     Indication: COLORECTAL CANCER
     Dosage: UNK
     Route: 065
  2. IRINOTECAN [Concomitant]
     Indication: COLORECTAL CANCER
     Dosage: UNK

REACTIONS (1)
  - Dermatitis acneiform [Recovered/Resolved]
